FAERS Safety Report 4636201-7 (Version None)
Quarter: 2005Q2

REPORT INFORMATION
  Report Type: 
  Country: None (occurrence: None)
  Receive Date: 20050413
  Receipt Date: 20050413
  Transmission Date: 20051028
  Serious: Yes (Other)
  Sender: FDA-Public Use
  Company Number: None

PATIENT
  Age: 44 Year
  Sex: Male
  Weight: 82.5547 kg

DRUGS (7)
  1. FENTANYL [Suspect]
     Indication: BACK PAIN
     Dosage: ONE PATCH EVY 3 DAYS
     Route: 062
  2. FENTANYL [Suspect]
     Indication: LYMPHOMA
     Dosage: ONE PATCH EVY 3 DAYS
     Route: 062
  3. FENTANYL [Suspect]
     Indication: PAIN
     Dosage: ONE PATCH EVY 3 DAYS
     Route: 062
  4. FENTANYL [Suspect]
     Indication: BACK PAIN
     Dosage: ONE PATCH EVY 3 DAYS
     Route: 062
  5. FENTANYL [Suspect]
     Indication: LYMPHOMA
     Dosage: ONE PATCH EVY 3 DAYS
     Route: 062
  6. FENTANYL [Suspect]
     Indication: PAIN
     Dosage: ONE PATCH EVY 3 DAYS
     Route: 062
  7. PERCOCET [Concomitant]

REACTIONS (4)
  - DRUG INEFFECTIVE [None]
  - PAIN [None]
  - PHARMACEUTICAL PRODUCT COMPLAINT [None]
  - SLEEP DISORDER [None]
